FAERS Safety Report 24237991 (Version 1)
Quarter: 2024Q3

REPORT INFORMATION
  Report Type: Spontaneous
  Country: IR (occurrence: IR)
  Receive Date: 20240822
  Receipt Date: 20240822
  Transmission Date: 20241016
  Serious: Yes (Hospitalization, Other)
  Sender: RK PHARMA
  Company Number: IR-RK PHARMA, INC-20240800046

PATIENT
  Age: 51 Year
  Sex: Male

DRUGS (1)
  1. DICLOFENAC POTASSIUM [Suspect]
     Active Substance: DICLOFENAC POTASSIUM
     Indication: Back pain
     Dosage: UNK, UNKNOWN
     Route: 030

REACTIONS (1)
  - Kounis syndrome [Recovered/Resolved]
